FAERS Safety Report 16585543 (Version 5)
Quarter: 2019Q4

REPORT INFORMATION
  Report Type: Spontaneous
  Country: US (occurrence: US)
  Receive Date: 20190717
  Receipt Date: 20191218
  Transmission Date: 20200122
  Serious: No
  Sender: FDA-Public Use
  Company Number: US-ACTELION-A-NJ2019-192995

PATIENT
  Sex: Female
  Weight: 61.22 kg

DRUGS (3)
  1. TADALAFIL. [Concomitant]
     Active Substance: TADALAFIL
     Dosage: 20 MG 2 TABLETS DAILY
  2. LETAIRIS [Concomitant]
     Active Substance: AMBRISENTAN
  3. OPSUMIT [Suspect]
     Active Substance: MACITENTAN
     Indication: PULMONARY ARTERIAL HYPERTENSION
     Dosage: 10 MG, QD
     Route: 048

REACTIONS (7)
  - Urinary tract infection [Unknown]
  - Bowel movement irregularity [Not Recovered/Not Resolved]
  - Dyspepsia [Unknown]
  - Cough [Unknown]
  - Peripheral swelling [Unknown]
  - Constipation [Not Recovered/Not Resolved]
  - Infection [Unknown]
